FAERS Safety Report 23901140 (Version 1)
Quarter: 2024Q2

REPORT INFORMATION
  Report Type: Report from Study
  Country: CA (occurrence: CA)
  Receive Date: 20240526
  Receipt Date: 20240526
  Transmission Date: 20240716
  Serious: Yes (Hospitalization)
  Sender: FDA-Public Use
  Company Number: CA-ABBVIE-5773502

PATIENT
  Sex: Male

DRUGS (1)
  1. BOTOX [Suspect]
     Active Substance: ONABOTULINUMTOXINA
     Indication: Migraine
     Dosage: TIME INTERVAL: AS NECESSARY: FREQUENCY EVERY THREE MONTHS
     Route: 030

REACTIONS (4)
  - Road traffic accident [Not Recovered/Not Resolved]
  - Gait inability [Not Recovered/Not Resolved]
  - Migraine [Not Recovered/Not Resolved]
  - Limb injury [Unknown]
